FAERS Safety Report 13902425 (Version 1)
Quarter: 2017Q3

REPORT INFORMATION
  Report Type: Spontaneous
  Country: US (occurrence: US)
  Receive Date: 20170824
  Receipt Date: 20170824
  Transmission Date: 20171127
  Serious: No
  Sender: FDA-Public Use
  Company Number: US-ROCHE-CID000000002130236

PATIENT
  Sex: Female

DRUGS (8)
  1. DURAGESIC [Concomitant]
     Active Substance: FENTANYL
     Route: 065
  2. ARIMIDEX [Concomitant]
     Active Substance: ANASTROZOLE
  3. VELBAN [Concomitant]
     Active Substance: VINBLASTINE SULFATE
     Route: 065
  4. NAVELBINE [Concomitant]
     Active Substance: VINORELBINE TARTRATE
  5. DOXIL [Concomitant]
     Active Substance: DOXORUBICIN HYDROCHLORIDE
  6. VELBAN [Concomitant]
     Active Substance: VINBLASTINE SULFATE
     Route: 065
  7. HERCEPTIN [Suspect]
     Active Substance: TRASTUZUMAB
     Indication: BREAST CANCER
     Dosage: MAINTENANCE DOSE
     Route: 065
  8. METHOTREXATE. [Concomitant]
     Active Substance: METHOTREXATE

REACTIONS (4)
  - Disease progression [Unknown]
  - Palmar erythema [Unknown]
  - Fatigue [Unknown]
  - Jaundice [Unknown]
